FAERS Safety Report 6367549-6 (Version None)
Quarter: 2009Q3

REPORT INFORMATION
  Report Type: 
  Country: None (occurrence: None)
  Receive Date: 20090921
  Receipt Date: 20090909
  Transmission Date: 20100115
  Serious: No
  Sender: FDA-Public Use
  Company Number: US-B.I. PHARMACEUTICALS,INC./RIDGEFIELD-2009-BP-10719BP

PATIENT
  Sex: Male
  Weight: 80.91 kg

DRUGS (3)
  1. ZANTAC 150 [Suspect]
     Indication: DYSPEPSIA
     Dosage: 150 MG
     Route: 048
     Dates: start: 20090909, end: 20090909
  2. ZANTAC 150 [Suspect]
     Dosage: 75 MG
     Route: 048
     Dates: start: 20090909, end: 20090909
  3. LIPITOR [Concomitant]

REACTIONS (1)
  - BACK PAIN [None]
